FAERS Safety Report 12702848 (Version 5)
Quarter: 2017Q1

REPORT INFORMATION
  Report Type: Report from Study
  Country: BR (occurrence: BR)
  Receive Date: 20160831
  Receipt Date: 20170221
  Transmission Date: 20170428
  Serious: Yes (Hospitalization, Other)
  Sender: FDA-Public Use
  Company Number: PHHY2016BR118757

PATIENT
  Sex: Female
  Weight: 42.2 kg

DRUGS (2)
  1. EXJADE [Suspect]
     Active Substance: DEFERASIROX
     Indication: MYELODYSPLASTIC SYNDROME
     Dosage: 200 MG, QD (4 DF)
     Route: 065
  2. EXJADE [Suspect]
     Active Substance: DEFERASIROX
     Dosage: 1000 MG, QD (2 DISPERSIBLE TABLETS OF 500MG)
     Route: 048
     Dates: start: 2011

REACTIONS (6)
  - Head discomfort [Unknown]
  - Bacterial infection [Not Recovered/Not Resolved]
  - Sepsis [Unknown]
  - Peripheral swelling [Unknown]
  - Oedema peripheral [Unknown]
  - Weight decreased [Recovered/Resolved]
